FAERS Safety Report 18666110 (Version 1)
Quarter: 2020Q4

REPORT INFORMATION
  Report Type: Spontaneous
  Country: GB (occurrence: GB)
  Receive Date: 20201226
  Receipt Date: 20201226
  Transmission Date: 20210114
  Serious: Yes (Other)
  Sender: FDA-Public Use
  Company Number: GB-TEVA-2020-GB-1861895

PATIENT
  Age: 47 Year
  Sex: Female
  Weight: 72.11 kg

DRUGS (4)
  1. ASCORBIC ACID. [Concomitant]
     Active Substance: ASCORBIC ACID
  2. GLUCOSAMINE [Concomitant]
     Active Substance: GLUCOSAMINE
  3. COD-LIVER OIL [Concomitant]
     Active Substance: COD LIVER OIL
  4. OMEPRAZOLE. [Suspect]
     Active Substance: OMEPRAZOLE
     Indication: REGURGITATION
     Dosage: 1 DOSAGE FORMS DAILY; IN THE MORNING
     Route: 048
     Dates: start: 20201104

REACTIONS (8)
  - Alopecia [Unknown]
  - Anger [Unknown]
  - Syncope [Unknown]
  - Dizziness [Unknown]
  - Anxiety [Not Recovered/Not Resolved]
  - Abnormal dreams [Unknown]
  - Insomnia [Unknown]
  - Feeling abnormal [Unknown]

NARRATIVE: CASE EVENT DATE: 202011
